FAERS Safety Report 6427893-0 (Version None)
Quarter: 2009Q4

REPORT INFORMATION
  Report Type: 
  Country: None (occurrence: None)
  Receive Date: 20091105
  Receipt Date: 20091029
  Transmission Date: 20100525
  Serious: Yes (Hospitalization)
  Sender: FDA-Public Use
  Company Number: FR-ASTRAZENECA-2009SE23401

PATIENT
  Age: 61 Year
  Sex: Female

DRUGS (6)
  1. NEXIUM [Suspect]
     Indication: GASTROOESOPHAGEAL REFLUX DISEASE
     Route: 048
     Dates: start: 20090925, end: 20091006
  2. LIORESAL [Suspect]
     Indication: MUSCLE SPASTICITY
     Route: 048
     Dates: start: 20090811, end: 20091006
  3. SKENAN [Concomitant]
     Route: 048
     Dates: start: 20090930
  4. RIVOTRIL [Concomitant]
     Dates: start: 20091002
  5. DEPAKENE [Concomitant]
  6. LYRICA [Concomitant]
     Dates: start: 20091004

REACTIONS (3)
  - RASH GENERALISED [None]
  - RASH MACULAR [None]
  - RASH MORBILLIFORM [None]
